FAERS Safety Report 8762934 (Version 2)
Quarter: 2012Q4

REPORT INFORMATION
  Report Type: Spontaneous
  Country: MX (occurrence: None)
  Receive Date: 20120824
  Receipt Date: 20120907
  Transmission Date: 20130627
  Serious: Yes (Death, Hospitalization)
  Sender: FDA-Public Use
  Company Number: ENTC2010-0381

PATIENT
  Age: 82 Year
  Sex: Male

DRUGS (4)
  1. STALEVO (LEVODOPA, CARBIDOPA, ENTACAPONE) [Suspect]
     Indication: PARKINSON^S DISEASE
     Dosage: 3 tablets per day
     Route: 048
     Dates: start: 200601, end: 20120525
  2. ONGLYZA [Concomitant]
  3. CLOPIDOGREL [Concomitant]
  4. ONBREZ [Concomitant]

REACTIONS (4)
  - Pneumonia [None]
  - Fall [None]
  - Head injury [None]
  - Asthenia [None]
